FAERS Safety Report 5481241-1 (Version None)
Quarter: 2007Q4

REPORT INFORMATION
  Report Type: 
  Country: None (occurrence: None)
  Receive Date: 20071010
  Receipt Date: 20071002
  Transmission Date: 20080405
  Serious: Yes (Other)
  Sender: FDA-Public Use
  Company Number: CA-WYE-G00425107

PATIENT
  Age: 73 Year
  Sex: Female

DRUGS (8)
  1. EFFEXOR [Suspect]
     Route: 048
  2. WARFARIN SODIUM [Suspect]
     Route: 048
  3. CAPTOPRIL [Concomitant]
  4. SENOKOT [Concomitant]
  5. MEVACOR [Concomitant]
  6. RANITIDINE HCL [Concomitant]
  7. TRYPTAN [Suspect]
     Route: 048
  8. ACETYLSALICYLIC ACID [Suspect]
     Route: 048

REACTIONS (2)
  - DIARRHOEA HAEMORRHAGIC [None]
  - HAEMATEMESIS [None]
